FAERS Safety Report 5013559-0 (Version None)
Quarter: 2006Q2

REPORT INFORMATION
  Report Type: 
  Country: None (occurrence: None)
  Receive Date: 20060525
  Receipt Date: 20060502
  Transmission Date: 20061013
  Serious: Yes (Other)
  Sender: FDA-Public Use
  Company Number: US200605000726

PATIENT
  Age: 8 Year
  Sex: Male

DRUGS (3)
  1. STRATTERA [Suspect]
     Indication: ATTENTION DEFICIT/HYPERACTIVITY DISORDER
     Dosage: 25 MG, EACH MORNING, UNK
     Route: 065
     Dates: start: 20020301, end: 20060419
  2. STRATTERA [Suspect]
     Indication: PSYCHOMOTOR HYPERACTIVITY
     Dosage: 25 MG, EACH MORNING, UNK
     Route: 065
     Dates: start: 20020301, end: 20060419
  3. ALBUTEROL [Concomitant]

REACTIONS (1)
  - CONVULSION [None]
